FAERS Safety Report 14778870 (Version 1)
Quarter: 2018Q2

REPORT INFORMATION
  Report Type: Report from Study
  Country: CA (occurrence: CA)
  Receive Date: 20180419
  Receipt Date: 20180419
  Transmission Date: 20180711
  Serious: Yes (Hospitalization)
  Sender: FDA-Public Use
  Company Number: CA-JNJFOC-20180417816

PATIENT
  Age: 17 Year
  Sex: Male
  Weight: 73.1 kg

DRUGS (1)
  1. STELARA [Suspect]
     Active Substance: USTEKINUMAB
     Indication: CROHN^S DISEASE
     Dosage: STRENGTH = 130 MG
     Route: 042
     Dates: start: 20180405

REACTIONS (3)
  - Product use issue [Unknown]
  - Off label use [Unknown]
  - Anal abscess [Unknown]

NARRATIVE: CASE EVENT DATE: 20180405
